FAERS Safety Report 7608330-7 (Version None)
Quarter: 2011Q3

REPORT INFORMATION
  Report Type: 
  Country: None (occurrence: None)
  Receive Date: 20110714
  Receipt Date: 20110629
  Transmission Date: 20111222
  Serious: No
  Sender: FDA-Public Use
  Company Number: US-B.I. PHARMACEUTICALS,INC./RIDGEFIELD-2011-BP-16678BP

PATIENT
  Age: 76 Year
  Sex: Male

DRUGS (5)
  1. HYDRALAZINE HCL [Concomitant]
     Indication: HYPERTENSION
  2. PRADAXA [Suspect]
     Indication: ATRIAL FIBRILLATION
     Dosage: 150 MG
     Route: 048
     Dates: start: 20110626
  3. AMIODARONE HCL [Concomitant]
     Indication: ATRIAL FIBRILLATION
  4. AVAPRO [Concomitant]
     Indication: HYPERTENSION
  5. COREG [Concomitant]
     Indication: ATRIAL FIBRILLATION

REACTIONS (4)
  - DIZZINESS [None]
  - URINARY RETENTION [None]
  - ABDOMINAL DISCOMFORT [None]
  - ASTHENIA [None]
